FAERS Safety Report 8851289 (Version 2)
Quarter: 2013Q1

REPORT INFORMATION
  Report Type: Spontaneous
  Country: US (occurrence: US)
  Receive Date: 20121021
  Receipt Date: 20130102
  Transmission Date: 20140127
  Serious: No
  Sender: FDA-Public Use
  Company Number: US-009507513-1210USA008236

PATIENT
  Sex: Male

DRUGS (5)
  1. PEGINTRON [Suspect]
     Indication: HEPATITIS C
     Dosage: 0.5/150
     Route: 058
     Dates: start: 20121009, end: 20121218
  2. PEGINTRON [Suspect]
     Dosage: 0.4/150
     Route: 058
     Dates: start: 20121218
  3. RIBAVIRIN [Suspect]
     Indication: HEPATITIS C
     Dosage: 1200 MG, QD
     Route: 048
     Dates: start: 20121009
  4. RIBAVIRIN [Suspect]
     Dosage: 400 MG, QD
     Route: 048
  5. VICTRELIS [Suspect]
     Indication: HEPATITIS C
     Dosage: UNK
     Route: 048
     Dates: start: 20121107

REACTIONS (6)
  - Injection site reaction [Unknown]
  - Anaemia [Unknown]
  - Leukopenia [Unknown]
  - Somnolence [Unknown]
  - Fatigue [Unknown]
  - Injection site reaction [Unknown]
